FAERS Safety Report 4772744-3 (Version None)
Quarter: 2005Q3

REPORT INFORMATION
  Report Type: 
  Country: None (occurrence: None)
  Receive Date: 20050919
  Receipt Date: 20050901
  Transmission Date: 20060218
  Serious: Yes (Other)
  Sender: FDA-Public Use
  Company Number: JP-ROCHE-416483

PATIENT
  Age: 46 Year
  Sex: Male

DRUGS (3)
  1. ROCEPHIN [Suspect]
     Route: 041
     Dates: start: 20040824, end: 20040824
  2. CRAVIT [Concomitant]
     Route: 048
     Dates: start: 20050822
  3. CERNILTON [Concomitant]
     Route: 048
     Dates: start: 20050822, end: 20050830

REACTIONS (2)
  - ANAPHYLACTIC SHOCK [None]
  - BLOOD PRESSURE DECREASED [None]
